FAERS Safety Report 15254447 (Version 1)
Quarter: 2018Q3

REPORT INFORMATION
  Report Type: Spontaneous
  Country: US (occurrence: US)
  Receive Date: 20180717
  Receipt Date: 20180717
  Transmission Date: 20181010
  Serious: No
  Sender: FDA-Public Use
  Company Number: None

PATIENT
  Age: 60 Year
  Sex: Female

DRUGS (1)
  1. AMPYRA [Suspect]
     Active Substance: DALFAMPRIDINE
     Indication: MULTIPLE SCLEROSIS
     Dates: start: 20111005

REACTIONS (6)
  - CD4 lymphocytes decreased [None]
  - B-lymphocyte count decreased [None]
  - T-lymphocyte count decreased [None]
  - Laboratory test abnormal [None]
  - Lymphocyte percentage decreased [None]
  - CD8 lymphocytes decreased [None]

NARRATIVE: CASE EVENT DATE: 20180712
